FAERS Safety Report 7863588-4 (Version None)
Quarter: 2011Q4

REPORT INFORMATION
  Report Type: 
  Country: None (occurrence: None)
  Receive Date: 20111027
  Receipt Date: 20101207
  Transmission Date: 20120403
  Serious: No
  Sender: FDA-Public Use
  Company Number: US-AMGEN-USASP2010008057

PATIENT
  Age: 65 Year
  Sex: Male

DRUGS (1)
  1. ENBREL [Suspect]
     Indication: RHEUMATOID ARTHRITIS
     Dates: start: 20090601

REACTIONS (4)
  - RESPIRATORY TRACT CONGESTION [None]
  - RHINORRHOEA [None]
  - UPPER RESPIRATORY TRACT IRRITATION [None]
  - THROAT IRRITATION [None]
